FAERS Safety Report 7905963-5 (Version None)
Quarter: 2011Q4

REPORT INFORMATION
  Report Type: 
  Country: None (occurrence: None)
  Receive Date: 20111110
  Receipt Date: 20111101
  Transmission Date: 20120403
  Serious: Yes (Disabling)
  Sender: FDA-Public Use
  Company Number: PHHY2011GB96271

PATIENT
  Age: 84 Year
  Sex: Female

DRUGS (5)
  1. VENTOLIN [Concomitant]
  2. SPIRIVA [Concomitant]
  3. BECLOMETHASONE DIPROPIONATE [Concomitant]
  4. DOXYCYCLINE [Suspect]
     Indication: TOOTH INFECTION
     Dosage: 100 MG, UNK
     Route: 048
     Dates: start: 20110926, end: 20111002
  5. PREDNISOLONE [Concomitant]

REACTIONS (2)
  - VISUAL IMPAIRMENT [None]
  - DYSPNOEA [None]
